FAERS Safety Report 8471884-5 (Version None)
Quarter: 2012Q2

REPORT INFORMATION
  Report Type: 
  Country: None (occurrence: None)
  Receive Date: 20120627
  Receipt Date: 20120618
  Transmission Date: 20120825
  Serious: Yes (Hospitalization)
  Sender: FDA-Public Use
  Company Number: GB-JNJFOC-20120600482

PATIENT
  Sex: Female

DRUGS (2)
  1. SIMPONI [Suspect]
     Route: 058
  2. SIMPONI [Suspect]
     Indication: PRODUCT USED FOR UNKNOWN INDICATION
     Route: 058
     Dates: start: 20120505

REACTIONS (2)
  - BLISTER [None]
  - BACK PAIN [None]
